FAERS Safety Report 6984952-1 (Version None)
Quarter: 2010Q3

REPORT INFORMATION
  Report Type: 
  Country: None (occurrence: None)
  Receive Date: 20100915
  Receipt Date: 20100903
  Transmission Date: 20110219
  Serious: Yes (Hospitalization, Disabling, Other)
  Sender: FDA-Public Use
  Company Number: US-ELI_LILLY_AND_COMPANY-US200811002876

PATIENT
  Sex: Female

DRUGS (25)
  1. CYMBALTA [Suspect]
     Indication: FIBROMYALGIA
     Dosage: 60 MG, UNK
     Dates: start: 20060515
  2. CYMBALTA [Suspect]
     Dosage: 30 MG, DAILY (1/D)
     Dates: start: 20080201, end: 20080101
  3. CYMBALTA [Suspect]
     Dosage: 60 MG, DAILY (1/D)
     Dates: start: 20080401, end: 20080814
  4. CYMBALTA [Suspect]
     Dosage: 90 MG, DAILY (1/D)
     Dates: end: 20080801
  5. RAMELTEON [Concomitant]
  6. AMITRIPTYLINE HCL [Concomitant]
  7. POTASSIUM CHLORIDE [Concomitant]
  8. GABAPENTIN [Concomitant]
  9. SINGULAIR [Concomitant]
  10. PROVENTIL-HFA [Concomitant]
  11. ADVAIR DISKUS 100/50 [Concomitant]
  12. SOMA [Concomitant]
  13. LORTAB [Concomitant]
  14. LEVOTHYROXINE SODIUM [Concomitant]
  15. OXYCODONE [Concomitant]
  16. MULTI-VITAMIN [Concomitant]
  17. VITAMIN B [Concomitant]
  18. THERA-GESIC [Concomitant]
     Route: 061
  19. VALIUM [Concomitant]
  20. PERCODAN                           /00090001/ [Concomitant]
  21. HYDROCODONE [Concomitant]
  22. ALBUTEROL [Concomitant]
  23. HYZAAR [Concomitant]
  24. GOLD SEAL ANTISEPTIC POWDER [Concomitant]
  25. POTASSIUM [Concomitant]

REACTIONS (28)
  - ALANINE AMINOTRANSFERASE INCREASED [None]
  - ANTINUCLEAR ANTIBODY POSITIVE [None]
  - ASPARTATE AMINOTRANSFERASE INCREASED [None]
  - ASTHENIA [None]
  - BACK PAIN [None]
  - BLISTER [None]
  - BLOOD ALKALINE PHOSPHATASE INCREASED [None]
  - CARDIAC ENZYMES INCREASED [None]
  - CHROMATURIA [None]
  - CONSTIPATION [None]
  - DISABILITY [None]
  - DIZZINESS [None]
  - DRUG INEFFECTIVE [None]
  - FALL [None]
  - HAEMATOMA [None]
  - HEADACHE [None]
  - HEMIPARESIS [None]
  - INJURY [None]
  - LIVER DISORDER [None]
  - LOSS OF CONSCIOUSNESS [None]
  - LUNG DISORDER [None]
  - MUSCLE INJURY [None]
  - NEUROPATHY PERIPHERAL [None]
  - PNEUMONIA [None]
  - RENAL FAILURE [None]
  - RHABDOMYOLYSIS [None]
  - SYNCOPE [None]
  - YELLOW SKIN [None]
